FAERS Safety Report 20189194 (Version 2)
Quarter: 2021Q4

REPORT INFORMATION
  Report Type: Report from Study
  Country: BR (occurrence: BR)
  Receive Date: 20211215
  Receipt Date: 20211218
  Transmission Date: 20220303
  Serious: Yes (Hospitalization, Other)
  Sender: FDA-Public Use
  Company Number: BR-NOVARTISPH-NVSC2021BR283870

PATIENT
  Age: 66 Year
  Sex: Female

DRUGS (1)
  1. GLYCOPYRRONIUM\INDACATEROL [Suspect]
     Active Substance: GLYCOPYRRONIUM\INDACATEROL
     Indication: Product used for unknown indication
     Dosage: 160 UG (110MCG+50 MCG)
     Route: 065

REACTIONS (12)
  - Malaise [Recovered/Resolved]
  - Dyspnoea [Recovered/Resolved]
  - Lung disorder [Recovered/Resolved]
  - Chills [Unknown]
  - Dyspnoea [Unknown]
  - Blood pressure increased [Unknown]
  - Oxygen consumption decreased [Unknown]
  - Diabetic metabolic decompensation [Unknown]
  - Dizziness [Unknown]
  - Headache [Unknown]
  - Loss of consciousness [Unknown]
  - Malaise [Unknown]

NARRATIVE: CASE EVENT DATE: 20210710
